FAERS Safety Report 25186003 (Version 2)
Quarter: 2025Q4

REPORT INFORMATION
  Report Type: Spontaneous
  Country: JP (occurrence: JP)
  Receive Date: 20250410
  Receipt Date: 20251229
  Transmission Date: 20260117
  Serious: Yes (Life-Threatening, Hospitalization, Other)
  Sender: ELI LILLY AND COMPANY
  Company Number: JP-ELI_LILLY_AND_COMPANY-JP202504008213

PATIENT
  Sex: Female

DRUGS (28)
  1. OLANZAPINE [Suspect]
     Active Substance: OLANZAPINE
     Indication: Anxiety disorder
     Dosage: 2.5 MG, DAILY
     Route: 064
  2. OLANZAPINE [Suspect]
     Active Substance: OLANZAPINE
     Indication: Anxiety disorder
     Dosage: 2.5 MG, DAILY
     Route: 064
  3. OLANZAPINE [Suspect]
     Active Substance: OLANZAPINE
     Indication: Depression
     Dosage: 2.5 MG, PRN
     Route: 064
  4. OLANZAPINE [Suspect]
     Active Substance: OLANZAPINE
     Indication: Depression
     Dosage: 2.5 MG, PRN
     Route: 064
  5. DULOXETINE HYDROCHLORIDE [Suspect]
     Active Substance: DULOXETINE HYDROCHLORIDE
     Indication: Depression
     Dosage: 60 MG, DAILY, GRADUALLY INCREASED TO 60 MG
     Route: 064
  6. DULOXETINE HYDROCHLORIDE [Suspect]
     Active Substance: DULOXETINE HYDROCHLORIDE
     Indication: Depression
     Dosage: 60 MG, DAILY, GRADUALLY INCREASED TO 60 MG
     Route: 064
  7. LORAZEPAM [Concomitant]
     Active Substance: LORAZEPAM
     Indication: Anxiety disorder
     Dosage: 1 MG
     Route: 064
  8. LORAZEPAM [Concomitant]
     Active Substance: LORAZEPAM
     Indication: Anxiety disorder
     Dosage: 1 MG
     Route: 064
  9. QUETIAPINE [Concomitant]
     Active Substance: QUETIAPINE
     Indication: Anxiety disorder
     Dosage: 150 MG
     Route: 064
  10. QUETIAPINE [Concomitant]
     Active Substance: QUETIAPINE
     Indication: Anxiety disorder
     Dosage: 150 MG
     Route: 064
  11. PROPOFOL [Concomitant]
     Active Substance: PROPOFOL
     Dosage: 100-120 MG
     Route: 064
  12. PROPOFOL [Concomitant]
     Active Substance: PROPOFOL
     Dosage: 100-120 MG
     Route: 064
  13. SUCCINYLCHOLINE [Concomitant]
     Active Substance: SUCCINYLCHOLINE
     Dosage: 60 MG
     Route: 064
  14. SUCCINYLCHOLINE [Concomitant]
     Active Substance: SUCCINYLCHOLINE
     Dosage: 60 MG
     Route: 064
  15. ROCURONIUM [Concomitant]
     Active Substance: ROCURONIUM BROMIDE
     Dosage: 40-60 MG
     Route: 064
  16. ROCURONIUM [Concomitant]
     Active Substance: ROCURONIUM BROMIDE
     Dosage: 40-60 MG
     Route: 064
  17. NICARDIPINE [Concomitant]
     Active Substance: NICARDIPINE
     Dosage: 0.25 MG
     Route: 064
  18. NICARDIPINE [Concomitant]
     Active Substance: NICARDIPINE
     Dosage: 0.25 MG
     Route: 064
  19. BETAMETHASONE [Concomitant]
     Active Substance: BETAMETHASONE
     Dosage: 12 MG
     Route: 064
  20. BETAMETHASONE [Concomitant]
     Active Substance: BETAMETHASONE
     Dosage: 12 MG
     Route: 064
  21. BIPERIDEN [Concomitant]
     Active Substance: BIPERIDEN
     Dosage: 1 MG, PRN
     Route: 064
  22. BIPERIDEN [Concomitant]
     Active Substance: BIPERIDEN
     Dosage: 1 MG, PRN
     Route: 064
  23. OXYTOCIN [Concomitant]
     Active Substance: OXYTOCIN
     Route: 064
  24. OXYTOCIN [Concomitant]
     Active Substance: OXYTOCIN
     Route: 064
  25. ROPIVACAINE [Concomitant]
     Active Substance: ROPIVACAINE
     Indication: Epidural anaesthesia
     Route: 064
  26. ROPIVACAINE [Concomitant]
     Active Substance: ROPIVACAINE
     Indication: Epidural anaesthesia
     Route: 064
  27. FENTANYL [Concomitant]
     Active Substance: FENTANYL
     Indication: Epidural anaesthesia
     Route: 064
  28. FENTANYL [Concomitant]
     Active Substance: FENTANYL
     Indication: Epidural anaesthesia
     Route: 064

REACTIONS (6)
  - Transient tachypnoea of the newborn [Unknown]
  - Nonreassuring foetal heart rate pattern [Unknown]
  - Baseline foetal heart rate variability disorder [Unknown]
  - Tachycardia foetal [Unknown]
  - Drug withdrawal syndrome neonatal [Recovering/Resolving]
  - Foetal exposure during pregnancy [Recovered/Resolved]
